FAERS Safety Report 10197127 (Version 1)
Quarter: 2014Q2

REPORT INFORMATION
  Report Type: Spontaneous
  Country: US (occurrence: None)
  Receive Date: 20140523
  Receipt Date: 20140523
  Transmission Date: 20141212
  Serious: Yes (Life-Threatening, Disabling)
  Sender: FDA-Public Use
  Company Number: None

PATIENT
  Age: 31 Year
  Sex: Female

DRUGS (1)
  1. OLANZAPINE [Suspect]
     Indication: HALLUCINATION, AUDITORY
     Route: 048

REACTIONS (4)
  - Heart rate increased [None]
  - Tremor [None]
  - Paraesthesia [None]
  - Therapy cessation [None]
